FAERS Safety Report 15241494 (Version 1)
Quarter: 2018Q3

REPORT INFORMATION
  Report Type: Spontaneous
  Country: US (occurrence: US)
  Receive Date: 20180712
  Receipt Date: 20180712
  Transmission Date: 20181010
  Serious: Yes (Other)
  Sender: FDA-Public Use
  Company Number: None

PATIENT
  Age: 62 Year
  Sex: Male
  Weight: 112.5 kg

DRUGS (8)
  1. XARELTO [Suspect]
     Active Substance: RIVAROXABAN
     Indication: MYOCARDIAL INFARCTION
     Dosage: ?          QUANTITY:1 TABLET(S);?
     Route: 048
     Dates: start: 20180416, end: 20180705
  2. LASIX [Concomitant]
     Active Substance: FUROSEMIDE
  3. XARELTO [Suspect]
     Active Substance: RIVAROXABAN
     Indication: CEREBROVASCULAR ACCIDENT
     Dosage: ?          QUANTITY:1 TABLET(S);?
     Route: 048
     Dates: start: 20180416, end: 20180705
  4. LIPITOR [Concomitant]
     Active Substance: ATORVASTATIN CALCIUM
  5. NEFEDIPINE [Concomitant]
  6. PROTONIX [Concomitant]
     Active Substance: PANTOPRAZOLE SODIUM
  7. ASPIRIN. [Concomitant]
     Active Substance: ASPIRIN
  8. SOLATOL [Concomitant]

REACTIONS (1)
  - Tinnitus [None]

NARRATIVE: CASE EVENT DATE: 20180423
